FAERS Safety Report 8833347 (Version 1)
Quarter: 2012Q4

REPORT INFORMATION
  Report Type: 
  Country: JP (occurrence: JP)
  Receive Date: 20121010
  Receipt Date: 20121010
  Transmission Date: 20130627
  Serious: Yes (Other)
  Sender: FDA-Public Use
  Company Number: JP-JNJFOC-20121004105

PATIENT
  Age: 39 Year
  Sex: Female

DRUGS (13)
  1. TRAMCET [Suspect]
     Indication: PAIN
     Dosage: once daily
     Route: 048
     Dates: start: 20120521, end: 20120701
  2. TRAMCET [Suspect]
     Indication: PAIN
     Route: 048
     Dates: start: 20120702, end: 20120723
  3. LIMAS [Concomitant]
     Dosage: once daily
     Route: 048
     Dates: start: 20120801
  4. LEXOTAN [Concomitant]
     Dosage: once daily
     Route: 048
     Dates: start: 20120110
  5. DEPAS [Concomitant]
     Dosage: once daily
     Route: 048
     Dates: start: 20120423
  6. GASMOTIN [Concomitant]
     Dosage: once daily
     Route: 048
     Dates: start: 20111019
  7. CYSTANIN [Concomitant]
     Dosage: once daily
     Route: 048
     Dates: start: 20111108
  8. ROZEREM [Concomitant]
     Dosage: once daily
     Route: 048
     Dates: start: 20110811
  9. LENDORMIN [Concomitant]
     Dosage: once daily
     Route: 048
     Dates: start: 20110820
  10. ROHYPNOL [Concomitant]
     Dosage: once daily
     Route: 048
     Dates: start: 20120227
  11. NEXIUM [Concomitant]
     Dosage: once daily
     Route: 048
     Dates: start: 20120507
  12. NAUZELIN [Concomitant]
     Dosage: once daily
     Route: 048
     Dates: start: 20111104
  13. UNKNOWN MEDICATION [Concomitant]
     Dosage: once daily
     Route: 065
     Dates: start: 20120409

REACTIONS (2)
  - Galactorrhoea [Recovering/Resolving]
  - Hyperprolactinaemia [Recovering/Resolving]
